FAERS Safety Report 6243279-6 (Version None)
Quarter: 2009Q2

REPORT INFORMATION
  Report Type: 
  Country: None (occurrence: None)
  Receive Date: 20090624
  Receipt Date: 20090612
  Transmission Date: 20091009
  Serious: Yes (Other)
  Sender: FDA-Public Use
  Company Number: PHHY2008FR12377

PATIENT
  Age: 52 Year
  Sex: Female

DRUGS (4)
  1. ZOMETA [Suspect]
     Indication: BREAST CANCER
     Dosage: 4 MG, QMO
     Dates: start: 20021001, end: 20060208
  2. ZOMETA [Suspect]
     Indication: METASTASES TO BONE
  3. CIFLOX [Concomitant]
     Indication: OSTEONECROSIS
     Dosage: UNK
     Dates: start: 20090603
  4. AUGMENTIN '125' [Concomitant]
     Indication: OSTEONECROSIS
     Dosage: UNK
     Dates: start: 20090603

REACTIONS (6)
  - GINGIVAL GRAFT [None]
  - IMPAIRED HEALING [None]
  - MASTECTOMY [None]
  - OSTEONECROSIS [None]
  - PAIN IN JAW [None]
  - TOOTH EXTRACTION [None]
